FAERS Safety Report 8839752 (Version 1)
Quarter: 2012Q4

REPORT INFORMATION
  Report Type: 
  Country: DE (occurrence: JP)
  Receive Date: 20121015
  Receipt Date: 20121015
  Transmission Date: 20130627
  Serious: Yes (Other)
  Sender: FDA-Public Use
  Company Number: JP-BRISTOL-MYERS SQUIBB COMPANY-17023862

PATIENT
  Age: 68 Year
  Sex: Female

DRUGS (3)
  1. METGLUCO [Suspect]
     Indication: DIABETES MELLITUS
     Dosage: 2 years
     Route: 048
  2. ACTOS [Suspect]
     Route: 048
  3. JANUVIA [Concomitant]
     Route: 048

REACTIONS (1)
  - Hepatic function abnormal [Recovered/Resolved]
